FAERS Safety Report 4850628-X (Version None)
Quarter: 2005Q4

REPORT INFORMATION
  Report Type: 
  Country: None (occurrence: None)
  Receive Date: 20051208
  Receipt Date: 20051123
  Transmission Date: 20060501
  Serious: Yes (Hospitalization, Other)
  Sender: FDA-Public Use
  Company Number: GB-2005-005744

PATIENT
  Age: 37 Year
  Sex: Male
  Weight: 83.9 kg

DRUGS (5)
  1. BETAFERON              (INTERFERON BETA - 1B) [Suspect]
     Indication: MULTIPLE SCLEROSIS
  2. SENNA (SENNA ALEXANDRINA) [Concomitant]
  3. TRAMADOL HCL [Concomitant]
  4. PARACETAMOL [Concomitant]
  5. MORPHINE [Concomitant]

REACTIONS (8)
  - ANOREXIA [None]
  - COLONIC PSEUDO-OBSTRUCTION [None]
  - HAEMATOCHEZIA [None]
  - INFECTION [None]
  - MYOPATHY [None]
  - NEUROPATHY [None]
  - VOMITING [None]
  - WEIGHT DECREASED [None]
